FAERS Safety Report 7983329-X (Version None)
Quarter: 2011Q4

REPORT INFORMATION
  Report Type: 
  Country: None (occurrence: None)
  Receive Date: 20111215
  Receipt Date: 20111206
  Transmission Date: 20120403
  Serious: Yes (Hospitalization)
  Sender: FDA-Public Use
  Company Number: AU-BAYER-2011-119332

PATIENT
  Age: 57 Year
  Sex: Male

DRUGS (1)
  1. ACETYLSALICYLIC ACID SRT [Suspect]
     Indication: PRODUCT USED FOR UNKNOWN INDICATION
     Dosage: DAILY DOSE 75 MG
     Route: 048

REACTIONS (4)
  - MUSCULAR WEAKNESS [None]
  - COMPARTMENT SYNDROME [None]
  - SENSORY DISTURBANCE [None]
  - PERONEAL NERVE PALSY [None]
